FAERS Safety Report 26161298 (Version 2)
Quarter: 2025Q4

REPORT INFORMATION
  Report Type: Spontaneous
  Country: EU (occurrence: EU)
  Receive Date: 20251216
  Receipt Date: 20251226
  Transmission Date: 20260118
  Serious: Yes (Hospitalization)
  Sender: AUROBINDO
  Company Number: EU-AFSSAPS-NC2025001902

PATIENT
  Age: 75 Year
  Sex: Female

DRUGS (4)
  1. AMOXICILLIN [Suspect]
     Active Substance: AMOXICILLIN
     Indication: Helicobacter infection
     Dosage: 2 GRAM, ONCE A DAY (1 G X 2/J)
     Route: 061
     Dates: start: 20251106, end: 20251110
  2. AZITHROMYCIN [Suspect]
     Active Substance: AZITHROMYCIN
     Indication: Helicobacter infection
     Dosage: 1 GRAM, ONCE A DAY
     Route: 061
     Dates: start: 20251106, end: 20251110
  3. METRONIDAZOLE [Suspect]
     Active Substance: METRONIDAZOLE
     Indication: Helicobacter infection
     Dosage: 1 GRAM, ONCE A DAY (500 MG X 2/J)
     Route: 061
     Dates: start: 20251106, end: 20251110
  4. ESOMEPRAZOLE [Suspect]
     Active Substance: ESOMEPRAZOLE
     Indication: Helicobacter infection
     Dosage: 80 MILLIGRAM, ONCE A DAY (40 MG X 2/J)
     Route: 061
     Dates: start: 20251106, end: 20251110

REACTIONS (5)
  - Diarrhoea [Recovering/Resolving]
  - Abdominal pain [Recovering/Resolving]
  - Headache [Recovering/Resolving]
  - Electrolyte imbalance [Recovering/Resolving]
  - Overdose [Unknown]

NARRATIVE: CASE EVENT DATE: 20251106
